FAERS Safety Report 19187119 (Version 3)
Quarter: 2021Q3

REPORT INFORMATION
  Report Type: Report from Study
  Country: US (occurrence: US)
  Receive Date: 20210428
  Receipt Date: 20210907
  Transmission Date: 20211014
  Serious: No
  Sender: FDA-Public Use
  Company Number: NVSC2021US094020

PATIENT
  Sex: Female

DRUGS (2)
  1. ENTRESTO [Suspect]
     Active Substance: SACUBITRIL\VALSARTAN
     Indication: CARDIAC FAILURE
  2. ENTRESTO [Suspect]
     Active Substance: SACUBITRIL\VALSARTAN
     Indication: CARDIAC FAILURE
     Dosage: UNK UNK, BID (49/51 MG)
     Route: 048
     Dates: start: 202102

REACTIONS (5)
  - Musculoskeletal stiffness [Unknown]
  - Pain in extremity [Unknown]
  - Skin hypertrophy [Unknown]
  - Depressed mood [Unknown]
  - Limb discomfort [Unknown]
